FAERS Safety Report 10336319 (Version 1)
Quarter: 2014Q3

REPORT INFORMATION
  Report Type: Spontaneous
  Country: US (occurrence: US)
  Receive Date: 20140723
  Receipt Date: 20140723
  Transmission Date: 20150326
  Serious: No
  Sender: FDA-Public Use
  Company Number: US-BRISTOL-MYERS SQUIBB COMPANY-20095097

PATIENT
  Age: 72 Year
  Sex: Female
  Weight: 64.85 kg

DRUGS (2)
  1. COUMADIN [Suspect]
     Active Substance: WARFARIN SODIUM
     Dosage: 6MG/D , BUT TOOK 12MG ONE DAY?SOMETIMES 7.5MG
  2. CENTRUM [Concomitant]
     Active Substance: VITAMINS

REACTIONS (3)
  - International normalised ratio fluctuation [Unknown]
  - Incorrect dose administered [Unknown]
  - Nasopharyngitis [Unknown]
